FAERS Safety Report 21745522 (Version 2)
Quarter: 2023Q1

REPORT INFORMATION
  Report Type: Spontaneous
  Country: US (occurrence: US)
  Receive Date: 20221219
  Receipt Date: 20230222
  Transmission Date: 20230418
  Serious: Yes (Hospitalization, Other)
  Sender: FDA-Public Use
  Company Number: US-BIOVITRUM-2022US14803

PATIENT
  Age: 0 Year
  Sex: Female

DRUGS (2)
  1. SYNAGIS [Suspect]
     Active Substance: PALIVIZUMAB
     Indication: Pulmonary valve stenosis congenital
     Dates: start: 20221021
  2. SYNAGIS [Suspect]
     Active Substance: PALIVIZUMAB
     Indication: Premature baby
     Dates: start: 20220805

REACTIONS (2)
  - Gastric haemorrhage [Recovered/Resolved]
  - Bronchiolitis [Unknown]

NARRATIVE: CASE EVENT DATE: 20221209
